FAERS Safety Report 10181062 (Version 2)
Quarter: 2014Q2

REPORT INFORMATION
  Report Type: Spontaneous
  Country: US (occurrence: US)
  Receive Date: 20140519
  Receipt Date: 20140519
  Transmission Date: 20141212
  Serious: No
  Sender: FDA-Public Use
  Company Number: US-AMGEN INC.-USASP2014018697

PATIENT
  Age: 62 Year
  Sex: Female
  Weight: 74.38 kg

DRUGS (4)
  1. PROLIA [Suspect]
     Indication: OSTEOPOROSIS POSTMENOPAUSAL
     Dosage: 60 MG, Q6MO
     Route: 058
     Dates: start: 20130412
  2. PROLIA [Suspect]
     Dosage: 60 MG, Q6MO
     Route: 058
     Dates: start: 20131016
  3. CALCIUM [Concomitant]
     Dosage: 1500 MG, BID
  4. VITAMIN D                          /00107901/ [Concomitant]
     Dosage: 400IU, BID

REACTIONS (2)
  - Muscle twitching [Unknown]
  - Muscle spasms [Unknown]
